FAERS Safety Report 4282679-0 (Version None)
Quarter: 2004Q1

REPORT INFORMATION
  Report Type: 
  Country: None (occurrence: None)
  Receive Date: 20040130
  Receipt Date: 20030212
  Transmission Date: 20041129
  Serious: No
  Sender: FDA-Public Use
  Company Number: US-BRISTOL-MYERS SQUIBB COMPANY-12184768

PATIENT
  Age: 39 Year
  Sex: Female
  Weight: 104 kg

DRUGS (3)
  1. SERZONE [Suspect]
     Indication: DEPRESSION
     Dosage: TAKING SINCE 2000. ON PRODUCT FROM TIME OF CONCEPTION UNTIL 18 WEEKS GESTATION.
     Route: 048
     Dates: start: 20000101, end: 20030101
  2. LOVENOX [Concomitant]
  3. PRENATAL VITAMINS [Concomitant]

REACTIONS (2)
  - DRUG EXPOSURE DURING PREGNANCY [None]
  - NORMAL NEWBORN [None]
